FAERS Safety Report 7181568-1 (Version None)
Quarter: 2010Q4

REPORT INFORMATION
  Report Type: 
  Country: None (occurrence: None)
  Receive Date: 20101221
  Receipt Date: 20100426
  Transmission Date: 20110411
  Serious: No
  Sender: FDA-Public Use
  Company Number: US-AMGEN-TCS408566

PATIENT

DRUGS (6)
  1. ENBREL [Suspect]
     Indication: RHEUMATOID ARTHRITIS
     Dosage: 50 MG, QWK
     Dates: start: 20100407
  2. METHOTREXATE [Suspect]
     Dosage: UNK UNK, UNK
     Dates: end: 20100401
  3. TOPIRAMATE [Concomitant]
     Dosage: 25 MG, UNK
  4. FOLIC ACID [Concomitant]
     Dosage: 1 MG, UNK
  5. LEVOTHYROXINE SODIUM [Concomitant]
     Dosage: 25 A?G, UNK
  6. TOPROL-XL [Concomitant]
     Dosage: 25 MG, UNK

REACTIONS (1)
  - DIARRHOEA [None]
